FAERS Safety Report 6992680-1 (Version None)
Quarter: 2010Q3

REPORT INFORMATION
  Report Type: 
  Country: None (occurrence: None)
  Receive Date: 20100917
  Receipt Date: 20100913
  Transmission Date: 20110219
  Serious: Yes (Death, Hospitalization, Other)
  Sender: FDA-Public Use
  Company Number: US-CELGENEUS-163-21880-10060125

PATIENT
  Sex: Female

DRUGS (11)
  1. REVLIMID [Suspect]
     Indication: MYELODYSPLASTIC SYNDROME
     Route: 048
     Dates: start: 20071001, end: 20100501
  2. REVLIMID [Suspect]
     Route: 048
     Dates: start: 20070601
  3. REVLIMID [Suspect]
     Dosage: 5MG-10MG
     Route: 048
     Dates: start: 20070601
  4. REVLIMID [Suspect]
     Dates: start: 20061201
  5. NEULASTA [Concomitant]
     Route: 058
     Dates: start: 20100501
  6. DILAUDID [Concomitant]
     Indication: PAIN
     Route: 065
     Dates: start: 20100101
  7. TARCEVA [Concomitant]
     Route: 065
  8. INSULIN [Concomitant]
     Indication: PRODUCT USED FOR UNKNOWN INDICATION
     Route: 065
  9. OXYCONTIN [Concomitant]
     Indication: PRODUCT USED FOR UNKNOWN INDICATION
     Route: 065
  10. OXYCODONE HCL [Concomitant]
     Indication: PRODUCT USED FOR UNKNOWN INDICATION
     Route: 065
  11. REGLAN [Concomitant]
     Indication: PRODUCT USED FOR UNKNOWN INDICATION
     Route: 065

REACTIONS (56)
  - ACTIVATED PARTIAL THROMBOPLASTIN TIME PROLONGED [None]
  - AGITATION [None]
  - ANAEMIA [None]
  - APHASIA [None]
  - ASCITES [None]
  - ASTHENIA [None]
  - ATELECTASIS [None]
  - BILIRUBIN CONJUGATED INCREASED [None]
  - BLOOD ALKALINE PHOSPHATASE INCREASED [None]
  - BLOOD BILIRUBIN INCREASED [None]
  - BLOOD CALCIUM DECREASED [None]
  - BLOOD CREATINE PHOSPHOKINASE DECREASED [None]
  - BLOOD FIBRINOGEN INCREASED [None]
  - BLOOD PRESSURE DIASTOLIC DECREASED [None]
  - BLOOD SODIUM DECREASED [None]
  - CHOLANGITIS [None]
  - CITROBACTER TEST POSITIVE [None]
  - CONDITION AGGRAVATED [None]
  - CONJUNCTIVAL HAEMORRHAGE [None]
  - CONJUNCTIVAL OEDEMA [None]
  - DYSPHAGIA [None]
  - EMBOLIC STROKE [None]
  - ENTEROBACTER TEST POSITIVE [None]
  - FIBRIN DEGRADATION PRODUCTS INCREASED [None]
  - GASTROINTESTINAL OEDEMA [None]
  - GENERAL PHYSICAL HEALTH DETERIORATION [None]
  - HAEMOGLOBIN DECREASED [None]
  - IMPAIRED GASTRIC EMPTYING [None]
  - INTERNATIONAL NORMALISED RATIO INCREASED [None]
  - LIVER ABSCESS [None]
  - LIVER FUNCTION TEST ABNORMAL [None]
  - LUNG CONSOLIDATION [None]
  - MALIGNANT NEOPLASM PROGRESSION [None]
  - MALNUTRITION [None]
  - MENINGITIS [None]
  - MENTAL STATUS CHANGES [None]
  - MYELODYSPLASTIC SYNDROME [None]
  - NEUTROPHIL COUNT INCREASED [None]
  - OBSTRUCTION GASTRIC [None]
  - OCULAR ICTERUS [None]
  - PANCREATIC CARCINOMA [None]
  - PANCREATIC DUCT DILATATION [None]
  - PLATELET COUNT DECREASED [None]
  - PLEURAL EFFUSION [None]
  - PNEUMOBILIA [None]
  - PNEUMOCOCCAL SEPSIS [None]
  - POST PROCEDURAL COMPLICATION [None]
  - PROTHROMBIN TIME PROLONGED [None]
  - PSEUDOMONAS TEST POSITIVE [None]
  - PYELOCALIECTASIS [None]
  - PYREXIA [None]
  - RADIATION INJURY [None]
  - SEPTIC EMBOLUS [None]
  - STAPHYLOCOCCUS TEST POSITIVE [None]
  - THROMBOCYTOPENIA [None]
  - WHITE BLOOD CELL COUNT DECREASED [None]
